FAERS Safety Report 5298603-8 (Version None)
Quarter: 2007Q2

REPORT INFORMATION
  Report Type: 
  Country: None (occurrence: None)
  Receive Date: 20070417
  Receipt Date: 20070412
  Transmission Date: 20071010
  Serious: Yes (Hospitalization)
  Sender: FDA-Public Use
  Company Number: JP-BAYER-200710266BYL

PATIENT
  Age: 80 Year
  Sex: Male
  Weight: 67 kg

DRUGS (4)
  1. ASPIRIN [Suspect]
     Indication: THROMBOSIS PROPHYLAXIS
     Dosage: TOTAL DAILY DOSE: 100 MG  UNIT DOSE: 100 MG
     Route: 048
     Dates: start: 20070402, end: 20070404
  2. LOXONIN [Concomitant]
     Dosage: TOTAL DAILY DOSE: 180 MG  UNIT DOSE: 60 MG
     Route: 048
     Dates: start: 20070331, end: 20070404
  3. MAGMITT [Concomitant]
     Dosage: TOTAL DAILY DOSE: 750 MG  UNIT DOSE: 250 MG
     Route: 048
     Dates: start: 20070331, end: 20070402
  4. HEMOCURON [Concomitant]
     Route: 048
     Dates: start: 20070331, end: 20070402

REACTIONS (3)
  - RASH MACULAR [None]
  - TOXIC SKIN ERUPTION [None]
  - URTICARIA [None]
